FAERS Safety Report 9772255 (Version 1)
Quarter: 2013Q4

REPORT INFORMATION
  Report Type: Spontaneous
  Country: US (occurrence: None)
  Receive Date: 20131218
  Receipt Date: 20131218
  Transmission Date: 20140711
  Serious: Yes (Death)
  Sender: FDA-Public Use
  Company Number: None

PATIENT
  Age: 65 Year
  Sex: Male
  Weight: 99.34 kg

DRUGS (1)
  1. WARFARIN [Suspect]
     Indication: DEEP VEIN THROMBOSIS

REACTIONS (8)
  - Dyspnoea [None]
  - Fatigue [None]
  - Sedation [None]
  - Pyrexia [None]
  - Cough [None]
  - Cerebral haemorrhage [None]
  - Coma [None]
  - Brain death [None]
